FAERS Safety Report 8926501 (Version 1)
Quarter: 2012Q4

REPORT INFORMATION
  Report Type: 
  Country: US (occurrence: US)
  Receive Date: 20121127
  Receipt Date: 20121127
  Transmission Date: 20130627
  Serious: Yes (Other)
  Sender: FDA-Public Use
  Company Number: US-ELI_LILLY_AND_COMPANY-US201211006736

PATIENT
  Age: 64 Year
  Sex: Male

DRUGS (4)
  1. EFFIENT [Suspect]
     Indication: STENT PLACEMENT
     Dosage: UNK
     Route: 065
     Dates: start: 20121105, end: 20121119
  2. ASPIRIN [Concomitant]
  3. ANGIOMAX [Concomitant]
  4. INTEGRILIN [Concomitant]

REACTIONS (2)
  - Device occlusion [Unknown]
  - Off label use [Recovered/Resolved]
